FAERS Safety Report 20793833 (Version 1)
Quarter: 2022Q2

REPORT INFORMATION
  Report Type: Spontaneous
  Country: DE (occurrence: DE)
  Receive Date: 20220506
  Receipt Date: 20220506
  Transmission Date: 20220721
  Serious: Yes (Other)
  Sender: FDA-Public Use
  Company Number: DE-BoehringerIngelheim-2022-BI-167993

PATIENT
  Age: 26 Year
  Sex: Female

DRUGS (1)
  1. ALTEPLASE [Suspect]
     Active Substance: ALTEPLASE
     Indication: Thrombosis prophylaxis
     Route: 065

REACTIONS (5)
  - Hemiplegia [Unknown]
  - Drug ineffective [Unknown]
  - Somnolence [Unknown]
  - Speech disorder [Unknown]
  - Learning disorder [Unknown]
